FAERS Safety Report 5543558-1 (Version None)
Quarter: 2007Q4

REPORT INFORMATION
  Report Type: 
  Country: None (occurrence: None)
  Receive Date: 20071210
  Receipt Date: 20061110
  Transmission Date: 20080405
  Serious: No
  Sender: FDA-Public Use
  Company Number: US-AMGEN-KDL198335

PATIENT
  Sex: Female

DRUGS (3)
  1. ENBREL [Suspect]
     Indication: PSORIASIS
     Route: 058
     Dates: start: 20041111, end: 20050512
  2. ZOLOFT [Concomitant]
  3. NEXIUM [Concomitant]

REACTIONS (2)
  - DYSPHONIA [None]
  - VOCAL CORD POLYP [None]
